FAERS Safety Report 7300073-2 (Version None)
Quarter: 2011Q1

REPORT INFORMATION
  Report Type: 
  Country: None (occurrence: None)
  Receive Date: 20110208
  Receipt Date: 20101129
  Transmission Date: 20110831
  Serious: Yes (Life-Threatening, Hospitalization)
  Sender: FDA-Public Use
  Company Number: 2010SP061885

PATIENT
  Age: 67 Year
  Sex: Female

DRUGS (10)
  1. ABT-888 [Suspect]
     Indication: OVARIAN CANCER
     Dosage: 40 MG; PO
     Route: 048
     Dates: start: 20101012, end: 20101018
  2. LEVOTHYROXINE SODIUM [Concomitant]
  3. CANDESARTAN CILEXETIL [Concomitant]
  4. TEMOZOLOMIDE [Suspect]
     Indication: OVARIAN CANCER
     Dosage: PO
     Route: 048
     Dates: start: 20101012, end: 20101016
  5. PEGYLATED LIPOSOMAL DOXORUBICIN HCL [Suspect]
     Indication: OVARIAN CANCER
     Dosage: 90 MG; ; IV 72 MG; ; IV
     Route: 042
     Dates: start: 20100831, end: 20100831
  6. PEGYLATED LIPOSOMAL DOXORUBICIN HCL [Suspect]
     Indication: OVARIAN CANCER
     Dosage: 90 MG; ; IV 72 MG; ; IV
     Route: 042
     Dates: start: 20100803, end: 20100803
  7. CARBOPLATIN [Concomitant]
  8. TAXOL [Concomitant]
  9. PYRIDOXINE HYDROCHLORIDE [Concomitant]
  10. DOCUSATE [Concomitant]

REACTIONS (14)
  - ENTEROCOCCAL INFECTION [None]
  - PYREXIA [None]
  - ASPARTATE AMINOTRANSFERASE INCREASED [None]
  - BACTERAEMIA [None]
  - NEUTROPENIA [None]
  - CONSTIPATION [None]
  - LEUKOPENIA [None]
  - FEBRILE NEUTROPENIA [None]
  - BONE MARROW FAILURE [None]
  - HYPOTENSION [None]
  - HYPOTHYROIDISM [None]
  - THROMBOCYTOPENIA [None]
  - RECTAL HAEMORRHAGE [None]
  - HYPERTENSION [None]
